FAERS Safety Report 10668491 (Version 2)
Quarter: 2015Q1

REPORT INFORMATION
  Report Type: Spontaneous
  Country: US (occurrence: None)
  Receive Date: 20141217
  Receipt Date: 20150319
  Transmission Date: 20150720
  Serious: No
  Sender: FDA-Public Use
  Company Number: 2014CT000136

PATIENT
  Age: 48 Year
  Sex: Female
  Weight: 171.01 kg

DRUGS (11)
  1. ASPIRIN. [Concomitant]
     Active Substance: ASPIRIN
  2. HYDROCHLOROTHIAZIDE. [Concomitant]
     Active Substance: HYDROCHLOROTHIAZIDE
  3. LISINOPRIL. [Concomitant]
     Active Substance: LISINOPRIL
  4. METOPROLOL [Concomitant]
     Active Substance: METOPROLOL
  5. GABAPENTIN. [Concomitant]
     Active Substance: GABAPENTIN
  6. INSULIN [Concomitant]
     Active Substance: INSULIN NOS
  7. LEVEMIR [Concomitant]
     Active Substance: INSULIN DETEMIR
  8. KORLYM [Suspect]
     Active Substance: MIFEPRISTONE
     Indication: PITUITARY-DEPENDENT CUSHING^S SYNDROME
     Route: 048
     Dates: start: 20140812
  9. SPIRONOLACTONE. [Concomitant]
     Active Substance: SPIRONOLACTONE
  10. NOVOLOG [Concomitant]
     Active Substance: INSULIN ASPART
  11. CRESTOR [Concomitant]
     Active Substance: ROSUVASTATIN CALCIUM

REACTIONS (8)
  - Nausea [None]
  - Blood glucose decreased [None]
  - Depressed mood [None]
  - Dizziness [None]
  - Sleep disorder [None]
  - Blood glucose fluctuation [None]
  - Hypertension [None]
  - Decreased appetite [None]

NARRATIVE: CASE EVENT DATE: 201408
